FAERS Safety Report 15323636 (Version 1)
Quarter: 2018Q4

REPORT INFORMATION
  Report Type: Spontaneous
  Country: DE (occurrence: DE)
  Receive Date: 20180827
  Receipt Date: 20180827
  Transmission Date: 20190204
  Serious: Yes (Other)
  Sender: FDA-Public Use
  Company Number: PHHY2018DE078420

PATIENT
  Age: 29 Year
  Sex: Male

DRUGS (4)
  1. METOPROLOL. [Suspect]
     Active Substance: METOPROLOL
     Dosage: 50 MG, BID (FOR 9 WEEKS)
     Route: 065
     Dates: end: 201808
  2. METOPROLOL. [Suspect]
     Active Substance: METOPROLOL
     Indication: MIGRAINE PROPHYLAXIS
     Dosage: 50 MG, QD (CA. 10 WEEKS PRIOR TO THE REPORT )
     Route: 065
     Dates: start: 2018
  3. IBUPROFEN. [Concomitant]
     Active Substance: IBUPROFEN
     Indication: PRODUCT USED FOR UNKNOWN INDICATION
     Dosage: UNK UNK, PRN
     Route: 065
  4. SUMATRIPTAN. [Concomitant]
     Active Substance: SUMATRIPTAN
     Indication: PRODUCT USED FOR UNKNOWN INDICATION
     Dosage: UNK UNK, PRN
     Route: 065

REACTIONS (3)
  - Headache [Unknown]
  - Testicular infarction [Unknown]
  - Leukopenia [Unknown]

NARRATIVE: CASE EVENT DATE: 20180806
